FAERS Safety Report 7819650-5 (Version None)
Quarter: 2011Q4

REPORT INFORMATION
  Report Type: 
  Country: None (occurrence: None)
  Receive Date: 20111013
  Receipt Date: 20110927
  Transmission Date: 20120403
  Serious: Yes (Death, Hospitalization)
  Sender: FDA-Public Use
  Company Number: BACL20110010

PATIENT
  Age: 58 Year
  Sex: Male

DRUGS (3)
  1. BACLOFEN [Suspect]
     Indication: MUSCLE SPASMS
     Dosage: 100 MG, 1 IN 1 D, ORAL
     Route: 048
  2. BACLOFEN [Suspect]
     Dosage: 20 MCG, INTRATHECAL
     Route: 037
  3. DIAZEPAM [Suspect]
     Indication: MUSCLE SPASMS
     Dosage: 10 MG, 1 IN 1 D

REACTIONS (7)
  - BRADYCARDIA [None]
  - ARRHYTHMIA [None]
  - LOSS OF CONSCIOUSNESS [None]
  - DRUG EFFECT DECREASED [None]
  - REFUSAL OF TREATMENT BY PATIENT [None]
  - HYPOTENSION [None]
  - CARDIAC ARREST [None]
